FAERS Safety Report 16233149 (Version 1)
Quarter: 2019Q2

REPORT INFORMATION
  Report Type: Spontaneous
  Country: US (occurrence: US)
  Receive Date: 20190319
  Receipt Date: 20190319
  Transmission Date: 20190711
  Serious: Yes (Hospitalization)
  Sender: FDA-Public Use
  Company Number: None

PATIENT
  Age: 71 Year
  Sex: Female
  Weight: 96.2 kg

DRUGS (2)
  1. CARBOPLATIN. [Suspect]
     Active Substance: CARBOPLATIN
     Dates: end: 20190306
  2. TAXOL [Suspect]
     Active Substance: PACLITAXEL
     Dates: end: 20190306

REACTIONS (20)
  - Ascites [None]
  - Pleural effusion [None]
  - Nausea [None]
  - Diarrhoea [None]
  - Product dose omission [None]
  - Ulcer [None]
  - Metastases to peritoneum [None]
  - Recurrent cancer [None]
  - Acute respiratory failure [None]
  - Hypovolaemia [None]
  - Atelectasis [None]
  - Gastrointestinal disorder [None]
  - Abdominal pain [None]
  - Vomiting [None]
  - Respiratory failure [None]
  - Inadequate analgesia [None]
  - Escherichia urinary tract infection [None]
  - Product communication issue [None]
  - Frequent bowel movements [None]
  - Tachycardia [None]

NARRATIVE: CASE EVENT DATE: 20190311
